FAERS Safety Report 8256645-4 (Version None)
Quarter: 2012Q2

REPORT INFORMATION
  Report Type: 
  Country: None (occurrence: None)
  Receive Date: 20120403
  Receipt Date: 20120323
  Transmission Date: 20120825
  Serious: Yes (Hospitalization, Other)
  Sender: FDA-Public Use
  Company Number: US-MERCK-1110USA02430

PATIENT
  Age: 53 Year
  Sex: Female
  Weight: 56 kg

DRUGS (6)
  1. RECLAST [Suspect]
     Indication: OSTEOPENIA
     Route: 042
     Dates: start: 20090610, end: 20100610
  2. FOSAMAX [Suspect]
     Indication: OSTEOPENIA
     Route: 048
     Dates: start: 19960101, end: 20010801
  3. HORMONES (UNSPECIFIED) [Concomitant]
     Route: 065
     Dates: start: 19940101, end: 20010101
  4. FOSAMAX [Suspect]
     Route: 048
  5. FOSAMAX [Suspect]
     Route: 048
     Dates: start: 20010101, end: 20081001
  6. CALCIUM (UNSPECIFIED) [Concomitant]
     Indication: OSTEOPENIA
     Route: 065
     Dates: start: 19900101, end: 20100101

REACTIONS (36)
  - FRACTURE NONUNION [None]
  - UTERINE HAEMORRHAGE [None]
  - BURSITIS [None]
  - DRUG HYPERSENSITIVITY [None]
  - FAECAL INCONTINENCE [None]
  - BUNION [None]
  - NEPHROLITHIASIS [None]
  - NAUSEA [None]
  - OSTEOARTHRITIS [None]
  - MASS [None]
  - PAIN [None]
  - SCIATICA [None]
  - UTERINE POLYP [None]
  - DEVICE FAILURE [None]
  - ENDOMETRIAL CANCER STAGE I [None]
  - POSTMENOPAUSAL HAEMORRHAGE [None]
  - NECK PAIN [None]
  - TYPE V HYPERLIPIDAEMIA [None]
  - URETERIC CALCULUS REMOVAL [None]
  - INSOMNIA [None]
  - MULTIPLE ALLERGIES [None]
  - INTERVERTEBRAL DISC PROTRUSION [None]
  - HYPERCHOLESTEROLAEMIA [None]
  - HEADACHE [None]
  - SCOLIOSIS [None]
  - CATARACT [None]
  - FEMUR FRACTURE [None]
  - CALCULUS URETERIC [None]
  - INTERVERTEBRAL DISC DEGENERATION [None]
  - ANKLE FRACTURE [None]
  - HYPERCALCAEMIA [None]
  - COLITIS [None]
  - FALL [None]
  - ANAL SPHINCTER ATONY [None]
  - LOW TURNOVER OSTEOPATHY [None]
  - HYPERTENSION [None]
